FAERS Safety Report 26135892 (Version 2)
Quarter: 2025Q4

REPORT INFORMATION
  Report Type: Spontaneous
  Country: CN (occurrence: CN)
  Receive Date: 20251209
  Receipt Date: 20251218
  Transmission Date: 20260118
  Serious: Yes (Other)
  Sender: PFIZER
  Company Number: CN-MLMSERVICE-20251125-PI726573-00201-1

PATIENT
  Age: 51 Year
  Sex: Male
  Weight: 50 kg

DRUGS (14)
  1. METHOTREXATE SODIUM [Suspect]
     Active Substance: METHOTREXATE SODIUM
     Indication: Prophylactic chemotherapy
     Dosage: 10 MG
     Route: 037
  2. CYTARABINE [Suspect]
     Active Substance: CYTARABINE
     Indication: Prophylactic chemotherapy
     Dosage: 30 MG
     Route: 037
  3. DEXAMETHASONE [Suspect]
     Active Substance: DEXAMETHASONE
     Indication: Prophylactic chemotherapy
     Dosage: 5 MG
     Route: 037
  4. LIDOCAINE [Suspect]
     Active Substance: LIDOCAINE
     Indication: Local anaesthesia
     Dosage: 5 ML
  5. RITUXIMAB [Concomitant]
     Active Substance: RITUXIMAB
     Indication: Diffuse large B-cell lymphoma stage I
     Dosage: 600 MG, CYCLIC (DAY 1)
  6. RITUXIMAB [Concomitant]
     Active Substance: RITUXIMAB
     Indication: Testis cancer
     Dosage: UNK, CYCLIC (TWO ADDITIONAL CYCLES)
  7. CYCLOPHOSPHAMIDE [Concomitant]
     Active Substance: CYCLOPHOSPHAMIDE
     Indication: Diffuse large B-cell lymphoma stage I
     Dosage: 1100 MG, CYCLIC (DAY 1)
  8. CYCLOPHOSPHAMIDE [Concomitant]
     Active Substance: CYCLOPHOSPHAMIDE
     Indication: Testis cancer
  9. VINCRISTINE [Concomitant]
     Active Substance: VINCRISTINE
     Indication: Diffuse large B-cell lymphoma stage I
     Dosage: 4 MG, CYCLIC (DAY 1)
  10. VINCRISTINE [Concomitant]
     Active Substance: VINCRISTINE
     Indication: Testis cancer
  11. PREDNISONE [Concomitant]
     Active Substance: PREDNISONE
     Indication: Diffuse large B-cell lymphoma stage I
     Dosage: 50 MG, 2X/DAY (DAYS 1-5)
  12. PREDNISONE [Concomitant]
     Active Substance: PREDNISONE
     Indication: Testis cancer
  13. LENALIDOMIDE [Concomitant]
     Active Substance: LENALIDOMIDE
     Indication: Diffuse large B-cell lymphoma stage I
     Dosage: 25 MG, CYCLIC (ONCE DAILY, DAYS 1-10)
  14. LENALIDOMIDE [Concomitant]
     Active Substance: LENALIDOMIDE
     Indication: Testis cancer

REACTIONS (2)
  - Spontaneous penile erection [Recovered/Resolved]
  - Off label use [Unknown]
